FAERS Safety Report 5407129-X (Version None)
Quarter: 2007Q3

REPORT INFORMATION
  Report Type: 
  Country: None (occurrence: None)
  Receive Date: 20070803
  Receipt Date: 20070803
  Transmission Date: 20080115
  Serious: No
  Sender: FDA-Public Use
  Company Number: None

PATIENT
  Age: 58 Year
  Sex: Female
  Weight: 83.0083 kg

DRUGS (2)
  1. METFORMIN HCL [Suspect]
     Indication: TYPE 2 DIABETES MELLITUS
     Dosage: 500 MG 1 TAB A.M. C FOOD PO
     Route: 048
     Dates: start: 20070707, end: 20070802
  2. METFORMIN HCL [Suspect]
     Indication: TYPE 2 DIABETES MELLITUS
     Dosage: 500 MG 2 TABS. P.M. C FOOD PO
     Route: 048
     Dates: start: 20070707, end: 20070802

REACTIONS (4)
  - BLOOD GLUCOSE INCREASED [None]
  - FATIGUE [None]
  - MYALGIA [None]
  - PHARMACEUTICAL PRODUCT COMPLAINT [None]
